FAERS Safety Report 8468207-4 (Version None)
Quarter: 2012Q2

REPORT INFORMATION
  Report Type: 
  Country: None (occurrence: None)
  Receive Date: 20120626
  Receipt Date: 20120619
  Transmission Date: 20120825
  Serious: Yes (Hospitalization, Other)
  Sender: FDA-Public Use
  Company Number: BR-PFIZER INC-2012148168

PATIENT

DRUGS (1)
  1. TYGACIL [Suspect]
     Dosage: UNK
     Route: 042
     Dates: start: 20120607, end: 20120601

REACTIONS (2)
  - STEVENS-JOHNSON SYNDROME [None]
  - DERMATITIS BULLOUS [None]
